FAERS Safety Report 5125039-2 (Version None)
Quarter: 2006Q4

REPORT INFORMATION
  Report Type: 
  Country: None (occurrence: None)
  Receive Date: 20061010
  Receipt Date: 20061010
  Transmission Date: 20070319
  Serious: Yes (Hospitalization)
  Sender: FDA-Public Use
  Company Number: None

PATIENT
  Age: 62 Year
  Sex: Male

DRUGS (3)
  1. NPH INSULIN [Suspect]
     Indication: DIABETES MELLITUS INSULIN-DEPENDENT
     Dosage: 40 UNITS QAM/ 45 UNITS QPM
     Dates: start: 19991101
  2. AMITRIPTYLINE HCL [Concomitant]
  3. OMEPRAZOLE [Concomitant]

REACTIONS (1)
  - HYPOGLYCAEMIA [None]
